FAERS Safety Report 10669979 (Version 2)
Quarter: 2014Q4

REPORT INFORMATION
  Report Type: Report from Study
  Country: US (occurrence: US)
  Receive Date: 20141223
  Receipt Date: 20141223
  Transmission Date: 20150529
  Serious: Yes (Death)
  Sender: FDA-Public Use
  Company Number: US-EXELIXIS-CABO-14004377

PATIENT
  Sex: Male

DRUGS (3)
  1. CABOZANTINIB [Suspect]
     Active Substance: CABOZANTINIB
     Dosage: 40 MG, QD
     Route: 048
     Dates: start: 20140513, end: 201408
  2. CABOZANTINIB [Suspect]
     Active Substance: CABOZANTINIB
     Indication: PROSTATE CANCER
     Dosage: 100 MG, QD
     Route: 048
     Dates: start: 20140401, end: 20140512
  3. ZYTIGA [Concomitant]
     Active Substance: ABIRATERONE ACETATE

REACTIONS (11)
  - Activities of daily living impaired [Unknown]
  - Pain in extremity [Unknown]
  - Dehydration [Unknown]
  - Death [Fatal]
  - Gait disturbance [Unknown]
  - Erythema [Recovering/Resolving]
  - Blister [Recovering/Resolving]
  - Pain in extremity [Unknown]
  - Thirst [Unknown]
  - Memory impairment [Unknown]
  - Off label use [Unknown]

NARRATIVE: CASE EVENT DATE: 2014
